FAERS Safety Report 6956541-6 (Version None)
Quarter: 2010Q3

REPORT INFORMATION
  Report Type: 
  Country: None (occurrence: None)
  Receive Date: 20100830
  Receipt Date: 20100504
  Transmission Date: 20110219
  Serious: Yes (Other)
  Sender: FDA-Public Use
  Company Number: US-AMGEN-QUU378242

PATIENT
  Sex: Female
  Weight: 66.7 kg

DRUGS (15)
  1. NEUPOGEN [Suspect]
     Indication: NEUTROPENIA
     Route: 058
     Dates: start: 20080201
  2. VICODIN [Concomitant]
     Dates: start: 20080101
  3. ZOFRAN [Concomitant]
     Dates: start: 20080101
  4. CIPRO [Concomitant]
     Dates: start: 20080101
  5. LYRICA [Concomitant]
     Dates: start: 20080101
  6. LEXAPRO [Concomitant]
     Dates: start: 20080101
  7. AVINZA [Concomitant]
     Dates: start: 20080101
  8. IMURAN [Concomitant]
  9. PREDNISONE [Concomitant]
  10. PREMARIN [Concomitant]
  11. OSCAL D [Concomitant]
  12. AZMACORT [Concomitant]
     Route: 055
  13. AMBIEN [Concomitant]
  14. SYNTHROID [Concomitant]
  15. RITUXAN [Concomitant]
     Route: 042

REACTIONS (1)
  - ACUTE FEBRILE NEUTROPHILIC DERMATOSIS [None]
